FAERS Safety Report 16271265 (Version 2)
Quarter: 2019Q2

REPORT INFORMATION
  Report Type: Spontaneous
  Country: CN (occurrence: CN)
  Receive Date: 20190503
  Receipt Date: 20190513
  Transmission Date: 20190711
  Serious: Yes (Other)
  Sender: FDA-Public Use
  Company Number: CN-ASTRAZENECA-2019SE66457

PATIENT
  Sex: Male

DRUGS (1)
  1. LOSEC [Suspect]
     Active Substance: OMEPRAZOLE
     Indication: ABDOMINAL DISCOMFORT
     Route: 048

REACTIONS (7)
  - Flushing [Unknown]
  - Pruritus [Unknown]
  - Erythema [Unknown]
  - Tension headache [Unknown]
  - Anaphylactic reaction [Unknown]
  - Mass [Unknown]
  - Urticaria [Unknown]
